FAERS Safety Report 4649370-X (Version None)
Quarter: 2005Q2

REPORT INFORMATION
  Report Type: 
  Country: None (occurrence: None)
  Receive Date: 20050428
  Receipt Date: 20050428
  Transmission Date: 20051028
  Serious: Yes (Hospitalization, Other)
  Sender: FDA-Public Use
  Company Number: None

PATIENT
  Age: 59 Year
  Sex: Male
  Weight: 92.1 kg

DRUGS (10)
  1. HEPARIN SODIUM 1,000 UNITS IN SODIUM CHLORIDE 0.9% [Suspect]
     Dosage: 10 UNITS/KG THEN 15 UNITS/HOUR
     Dates: start: 20050204
  2. VANCOMYCIN [Concomitant]
  3. METHYLPREDNISOLONE [Concomitant]
  4. LEVAQUIN [Concomitant]
  5. FAMOTIDINE [Concomitant]
  6. ALBUTEROL [Concomitant]
  7. IPRATROPIUM BROMIDE [Concomitant]
  8. PROPOFOL [Concomitant]
  9. FENTANYL [Concomitant]
  10. ZOSYN [Concomitant]

REACTIONS (1)
  - HEPARIN-INDUCED THROMBOCYTOPENIA [None]
